FAERS Safety Report 6060543-4 (Version None)
Quarter: 2009Q1

REPORT INFORMATION
  Report Type: 
  Country: None (occurrence: None)
  Receive Date: 20090202
  Receipt Date: 20090121
  Transmission Date: 20090719
  Serious: Yes (Death)
  Sender: FDA-Public Use
  Company Number: US-JNJFOC-20090105854

PATIENT
  Sex: Female
  Weight: 80.29 kg

DRUGS (1)
  1. FENTANYL-75 [Suspect]
     Indication: DRUG USE FOR UNKNOWN INDICATION
     Route: 062

REACTIONS (2)
  - ANALGESIC DRUG LEVEL INCREASED [None]
  - MULTIPLE INJURIES [None]
